FAERS Safety Report 8188422-7 (Version None)
Quarter: 2012Q1

REPORT INFORMATION
  Report Type: 
  Country: None (occurrence: None)
  Receive Date: 20120306
  Receipt Date: 20120224
  Transmission Date: 20120608
  Serious: Yes (Death, Other)
  Sender: FDA-Public Use
  Company Number: PHHY2012IR017198

PATIENT
  Age: 13 Year
  Sex: Male

DRUGS (6)
  1. METOPROLOL SUCCINATE [Suspect]
     Route: 042
  2. HEPARIN [Suspect]
  3. MORPHINE [Suspect]
  4. NITRATES [Suspect]
     Route: 042
  5. FUROSEMIDE [Concomitant]
  6. CAPTOPRIL [Concomitant]
     Indication: CARDIAC FAILURE
     Route: 048

REACTIONS (18)
  - HYPOXIA [None]
  - SYSTOLIC DYSFUNCTION [None]
  - VENTRICULAR DYSKINESIA [None]
  - AKINESIA [None]
  - EMBOLISM [None]
  - CARDIOPULMONARY FAILURE [None]
  - MARROW HYPERPLASIA [None]
  - PANCYTOPENIA [None]
  - CARDIAC FAILURE [None]
  - CARDIAC VENTRICULAR DISORDER [None]
  - PULMONARY OEDEMA [None]
  - EJECTION FRACTION DECREASED [None]
  - EOSINOPHILIA [None]
  - DISSEMINATED INTRAVASCULAR COAGULATION [None]
  - CHEST PAIN [None]
  - DYSPNOEA [None]
  - MYOCARDIAL INFARCTION [None]
  - B PRECURSOR TYPE ACUTE LEUKAEMIA [None]
